FAERS Safety Report 8041024-5 (Version None)
Quarter: 2012Q1

REPORT INFORMATION
  Report Type: 
  Country: None (occurrence: None)
  Receive Date: 20120109
  Receipt Date: 20111223
  Transmission Date: 20120608
  Serious: Yes (Hospitalization)
  Sender: FDA-Public Use
  Company Number: UTC-013882

PATIENT
  Age: 66 Year
  Sex: Female
  Weight: 104.5 kg

DRUGS (3)
  1. DIURETICS (DIURETICS) DIURETICS (DIURETICS) [Concomitant]
  2. COUMADIN (WARFARIN SODIUM) COUMADIN (WARFARIN SODIUM) [Concomitant]
  3. REMODULIN [Suspect]
     Indication: PULMONARY ARTERIAL HYPERTENSION
     Dosage: 141.12 UG/KG (0.098 UG/KG,1 IN 1 MIN), INTRAVENOUS
     Route: 042
     Dates: start: 20081017

REACTIONS (4)
  - OXYGEN SATURATION DECREASED [None]
  - SYNCOPE [None]
  - DIZZINESS [None]
  - DYSPNOEA [None]
